FAERS Safety Report 6082398-4 (Version None)
Quarter: 2009Q1

REPORT INFORMATION
  Report Type: 
  Country: None (occurrence: None)
  Receive Date: 20090126
  Receipt Date: 20080411
  Transmission Date: 20090719
  Serious: Yes (Other)
  Sender: FDA-Public Use
  Company Number: 273941

PATIENT
  Age: 55 Year
  Sex: Female

DRUGS (1)
  1. LEVEMIR [Suspect]
     Indication: INSULIN-REQUIRING TYPE 2 DIABETES MELLITUS
     Dosage: SUBCUTANEOUS
     Route: 058
     Dates: start: 20070907, end: 20080407

REACTIONS (4)
  - HYPERSENSITIVITY [None]
  - INJECTION SITE PRURITUS [None]
  - PHARYNGEAL OEDEMA [None]
  - URTICARIA [None]
